FAERS Safety Report 4316421-1 (Version None)
Quarter: 2004Q1

REPORT INFORMATION
  Report Type: 
  Country: None (occurrence: None)
  Receive Date: 20040311
  Receipt Date: 20040224
  Transmission Date: 20041129
  Serious: Yes (Hospitalization)
  Sender: FDA-Public Use
  Company Number: 2004-112776-NL

PATIENT
  Age: 88 Year
  Sex: Female

DRUGS (8)
  1. MIRTAZAPINE [Suspect]
     Indication: DEPRESSION
     Dosage: 30 MG QD ORAL
     Route: 048
     Dates: start: 20040120, end: 20040209
  2. LANSOPRAZOLE [Suspect]
     Indication: OESOPHAGITIS
     Dosage: 30 MG QD ORAL
     Route: 048
  3. CLOPIDOGREL [Suspect]
     Dosage: 75 MG QD ORAL
     Route: 048
  4. SIMVASTATIN [Suspect]
     Indication: HYPERCHOLESTEROLAEMIA
     Dosage: 40 MG QD ORAL
     Route: 048
  5. OLANZAPINE [Suspect]
     Indication: AGITATION
     Dosage: 2.5 MG QD ORAL
     Route: 048
  6. RISEDRONATE [Concomitant]
  7. LACTULOSE [Concomitant]
  8. SENNA [Concomitant]

REACTIONS (1)
  - THROMBOCYTOPENIA [None]
